FAERS Safety Report 17671990 (Version 1)
Quarter: 2020Q2

REPORT INFORMATION
  Report Type: Spontaneous
  Country: DE (occurrence: DE)
  Receive Date: 20200415
  Receipt Date: 20200415
  Transmission Date: 20200713
  Serious: No
  Sender: FDA-Public Use
  Company Number: DE-EMD SERONO-E2B_90076377

PATIENT
  Sex: Female

DRUGS (1)
  1. MAVENCLAD [Suspect]
     Active Substance: CLADRIBINE
     Indication: MULTIPLE SCLEROSIS

REACTIONS (4)
  - Lymphocyte count decreased [Unknown]
  - Oral mucosal blistering [Not Recovered/Not Resolved]
  - Oral herpes [Unknown]
  - Multiple sclerosis relapse [Unknown]
